FAERS Safety Report 9167682 (Version 1)
Quarter: 2013Q1

REPORT INFORMATION
  Report Type: Spontaneous
  Country: IL (occurrence: IL)
  Receive Date: 20130318
  Receipt Date: 20130318
  Transmission Date: 20140127
  Serious: Yes (Hospitalization)
  Sender: FDA-Public Use
  Company Number: PHHY2013IL025923

PATIENT
  Age: 79 Year
  Sex: Female

DRUGS (1)
  1. ACLASTA [Suspect]
     Indication: OSTEOPOROSIS
     Dosage: 5 MG / 100ML, ONCE YEARLY
     Route: 042
     Dates: start: 20110414

REACTIONS (3)
  - Hernia [Recovered/Resolved]
  - Gallbladder disorder [Unknown]
  - Influenza like illness [Recovered/Resolved]
